FAERS Safety Report 20694312 (Version 1)
Quarter: 2022Q2

REPORT INFORMATION
  Report Type: Spontaneous
  Country: BR (occurrence: BR)
  Receive Date: 20220411
  Receipt Date: 20220411
  Transmission Date: 20220720
  Serious: Yes (Other)
  Sender: FDA-Public Use
  Company Number: BR-LUPIN PHARMACEUTICALS INC.-2022-05146

PATIENT
  Sex: Male

DRUGS (14)
  1. RIFAMPIN [Suspect]
     Active Substance: RIFAMPIN
     Indication: Tuberculosis
     Dosage: UNK (RHZ REGIMEN)
     Route: 065
     Dates: start: 200506
  2. RIFAMPIN [Suspect]
     Active Substance: RIFAMPIN
     Dosage: UNK (SRZ REGIME)
     Route: 065
  3. PYRAZINAMIDE [Suspect]
     Active Substance: PYRAZINAMIDE
     Indication: Tuberculosis
     Dosage: UNK (RHZ REGIMEN)
     Route: 065
     Dates: start: 200506
  4. PYRAZINAMIDE [Suspect]
     Active Substance: PYRAZINAMIDE
     Dosage: UNK (SRZ REGIMEN)
     Route: 065
     Dates: start: 200909
  5. PYRAZINAMIDE [Suspect]
     Active Substance: PYRAZINAMIDE
     Dosage: UNK ((ALTEETZ) REGIMEN
     Route: 065
     Dates: start: 201101
  6. ETHAMBUTOL [Suspect]
     Active Substance: ETHAMBUTOL HYDROCHLORIDE
     Indication: Tuberculosis
     Dosage: UNK (SOE REGIMEN)
     Route: 065
  7. ETHAMBUTOL [Suspect]
     Active Substance: ETHAMBUTOL HYDROCHLORIDE
     Dosage: UNK (SHE REGIMEN)
     Route: 065
     Dates: start: 200712
  8. ETHAMBUTOL [Suspect]
     Active Substance: ETHAMBUTOL HYDROCHLORIDE
     Dosage: UNK (ALTEETZ) REGIMEN
     Route: 065
     Dates: start: 201101
  9. ISONIAZID [Suspect]
     Active Substance: ISONIAZID
     Indication: Tuberculosis
     Dosage: UNK (RHZ REGIMEN)
     Route: 065
     Dates: start: 200506
  10. ISONIAZID [Suspect]
     Active Substance: ISONIAZID
     Dosage: UNK (SHE REGIME)
     Route: 065
     Dates: start: 200712
  11. STREPTOMYCIN [Suspect]
     Active Substance: STREPTOMYCIN SULFATE
     Indication: Tuberculosis
     Dosage: UNK (SOE REGIMEN)
     Route: 065
  12. STREPTOMYCIN [Suspect]
     Active Substance: STREPTOMYCIN SULFATE
     Dosage: UNK (SHE REGIMEN)
     Route: 065
     Dates: start: 200712
  13. STREPTOMYCIN [Suspect]
     Active Substance: STREPTOMYCIN SULFATE
     Dosage: UNK (SRZ) REGIME
     Route: 065
     Dates: start: 200909
  14. OFLOXACIN [Concomitant]
     Active Substance: OFLOXACIN
     Indication: Tuberculosis
     Dosage: UNK (SOE REGIMEN)
     Route: 065

REACTIONS (4)
  - Liver disorder [Unknown]
  - Multiple-drug resistance [Unknown]
  - Treatment failure [Unknown]
  - Drug ineffective [Unknown]

NARRATIVE: CASE EVENT DATE: 20080101
